FAERS Safety Report 9701117 (Version 1)
Quarter: 2013Q4

REPORT INFORMATION
  Report Type: Report from Study
  Country: ES (occurrence: ES)
  Receive Date: 20131121
  Receipt Date: 20131121
  Transmission Date: 20140711
  Serious: Yes (Other)
  Sender: FDA-Public Use
  Company Number: ES-ROCHE-1306350

PATIENT
  Sex: 0

DRUGS (6)
  1. CAPECITABINE [Suspect]
     Indication: GASTRIC CANCER
     Dosage: FOR 14 DAYS ON A 3 WEEKLY SCHEDULE
     Route: 065
  2. CAPECITABINE [Suspect]
     Dosage: DAILY
     Route: 065
  3. DOCETAXEL [Suspect]
     Indication: GASTRIC CANCER
     Dosage: ON DAY 1
     Route: 065
  4. DOCETAXEL [Suspect]
     Dosage: ON WEEKS 1, 2, 4 AND 5
     Route: 065
  5. OXALIPLATIN [Suspect]
     Indication: GASTRIC CANCER
     Dosage: ON DAY 1
     Route: 065
  6. OXALIPLATIN [Suspect]
     Dosage: ON WEEKS 1, 2, 4 AND 5
     Route: 065

REACTIONS (6)
  - Anaemia [Unknown]
  - Neutropenia [Unknown]
  - Diarrhoea [Unknown]
  - Vomiting [Unknown]
  - Gastrointestinal toxicity [Unknown]
  - Asthenia [Unknown]
